FAERS Safety Report 16336964 (Version 1)
Quarter: 2019Q2

REPORT INFORMATION
  Report Type: Other
  Country: GB (occurrence: GB)
  Receive Date: 20190521
  Receipt Date: 20190521
  Transmission Date: 20190711
  Serious: Yes (Disabling)
  Sender: FDA-Public Use
  Company Number: GB-APOTEX-2019AP014167

PATIENT
  Age: 56 Year
  Sex: Female

DRUGS (1)
  1. LATANOPROST. [Suspect]
     Active Substance: LATANOPROST
     Indication: GLAUCOMA
     Dosage: 2 GTT, Q.H.S.
     Route: 047
     Dates: start: 20181210

REACTIONS (1)
  - Depressed mood [Recovered/Resolved]

NARRATIVE: CASE EVENT DATE: 20181217
